FAERS Safety Report 6160641-0 (Version None)
Quarter: 2009Q2

REPORT INFORMATION
  Report Type: 
  Country: None (occurrence: None)
  Receive Date: 20090420
  Receipt Date: 20081125
  Transmission Date: 20091009
  Serious: Yes (Other)
  Sender: FDA-Public Use
  Company Number: US-PFIZER INC-2007108676

PATIENT
  Age: 53 Year
  Sex: Male
  Weight: 79.365 kg

DRUGS (2)
  1. CHANTIX [Suspect]
     Indication: SMOKING CESSATION THERAPY
     Dosage: 1 MG, 2X/DAY
     Route: 048
     Dates: start: 20061222, end: 20070209
  2. ZOLOFT [Suspect]
     Indication: DEPRESSION
     Dosage: 100MG, 1/2 DAILY
     Route: 048
     Dates: start: 20070202, end: 20070204

REACTIONS (4)
  - DYSPHONIA [None]
  - MUSCLE RIGIDITY [None]
  - SOMNOLENCE [None]
  - TREMOR [None]
